FAERS Safety Report 9154735 (Version 1)
Quarter: 2013Q1

REPORT INFORMATION
  Report Type: Report from Study
  Country: US (occurrence: US)
  Receive Date: 20130311
  Receipt Date: 20130311
  Transmission Date: 20140127
  Serious: Yes (Hospitalization, Other)
  Sender: FDA-Public Use
  Company Number: US-ABBOTT-12P-163-0918783-00

PATIENT
  Sex: Female
  Weight: 65.83 kg

DRUGS (4)
  1. LUPRON DEPOT 11.25 MG [Suspect]
     Indication: ADENOMYOSIS
     Route: 050
     Dates: start: 20120106, end: 20120206
  2. LUPRON DEPOT 11.25 MG [Suspect]
     Indication: UTERINE HAEMORRHAGE
  3. LUPRON DEPOT 11.25 MG [Suspect]
     Indication: ABDOMINAL PAIN
  4. LEXAPRO [Concomitant]
     Indication: PRODUCT USED FOR UNKNOWN INDICATION

REACTIONS (3)
  - Abdominal pain [Recovered/Resolved]
  - Drug ineffective [Unknown]
  - Uterine haemorrhage [Recovered/Resolved]
